FAERS Safety Report 11442258 (Version 1)
Quarter: 2015Q3

REPORT INFORMATION
  Report Type: Spontaneous
  Country: IT (occurrence: IT)
  Receive Date: 20150901
  Receipt Date: 20150901
  Transmission Date: 20151125
  Serious: Yes (Other)
  Sender: FDA-Public Use
  Company Number: CHPA2015IT010008

PATIENT
  Sex: Male

DRUGS (2)
  1. IBUPROFEN. [Suspect]
     Active Substance: IBUPROFEN
     Indication: TOOTHACHE
     Dosage: UNK
     Route: 048
     Dates: start: 20150716, end: 20150716
  2. AUGMENTIN [Suspect]
     Active Substance: AMOXICILLIN\CLAVULANATE POTASSIUM
     Indication: TOOTH ABSCESS
     Dosage: UNK
     Route: 048
     Dates: start: 20150715, end: 20150716

REACTIONS (3)
  - Presyncope [Recovering/Resolving]
  - Paraesthesia [Recovering/Resolving]
  - Vomiting [Recovering/Resolving]

NARRATIVE: CASE EVENT DATE: 20150716
